FAERS Safety Report 4265080-5 (Version None)
Quarter: 2004Q1

REPORT INFORMATION
  Report Type: 
  Country: None (occurrence: None)
  Receive Date: 20040106
  Receipt Date: 20040106
  Transmission Date: 20041129
  Serious: Yes (Other)
  Sender: FDA-Public Use
  Company Number: None

PATIENT
  Age: 63 Year
  Sex: Female
  Weight: 78.4723 kg

DRUGS (2)
  1. CYTOXAN [Suspect]
     Indication: BREAST CANCER
     Dosage: 600MG/M2 Q3WK X4 IV
     Route: 042
     Dates: start: 19960829, end: 19961117
  2. ADRIAMYCIN PFS [Suspect]
     Indication: BREAST CANCER
     Dosage: 60MG/M2 Q3WK X 4 IV
     Route: 042
     Dates: start: 19960829, end: 19961117

REACTIONS (2)
  - BREAST CANCER IN SITU [None]
  - METASTASIS [None]
